FAERS Safety Report 9454644 (Version 1)
Quarter: 2013Q3

REPORT INFORMATION
  Report Type: Other
  Country: JP (occurrence: JP)
  Receive Date: 20130812
  Receipt Date: 20130812
  Transmission Date: 20140515
  Serious: Yes (Other)
  Sender: FDA-Public Use
  Company Number: JP-BRISTOL-MYERS SQUIBB COMPANY-19186139

PATIENT
  Age: 63 Year
  Sex: Male

DRUGS (1)
  1. KENACORT-A INJ [Suspect]
     Indication: EPICONDYLITIS

REACTIONS (1)
  - Cubital tunnel syndrome [Recovering/Resolving]
